FAERS Safety Report 22393528 (Version 2)
Quarter: 2023Q2

REPORT INFORMATION
  Report Type: Spontaneous
  Country: US (occurrence: US)
  Receive Date: 20230601
  Receipt Date: 20230630
  Transmission Date: 20230722
  Serious: Yes (Hospitalization)
  Sender: FDA-Public Use
  Company Number: US-SAREPTA THERAPEUTICS INC.-SRP2023-003416

PATIENT
  Age: 27 Year
  Sex: Male
  Weight: 76 kg

DRUGS (1)
  1. EXONDYS 51 [Suspect]
     Active Substance: ETEPLIRSEN
     Indication: Duchenne muscular dystrophy
     Dosage: 2100 MILLIGRAM, WEEKLY
     Route: 042
     Dates: start: 2017

REACTIONS (2)
  - Pneumonia [Recovered/Resolved]
  - Pneumothorax [Recovered/Resolved]

NARRATIVE: CASE EVENT DATE: 20230522
